FAERS Safety Report 4855852-8 (Version None)
Quarter: 2005Q4

REPORT INFORMATION
  Report Type: 
  Country: None (occurrence: None)
  Receive Date: 20051216
  Receipt Date: 20051202
  Transmission Date: 20060501
  Serious: Yes (Other)
  Sender: FDA-Public Use
  Company Number: GB-GLAXOSMITHKLINE-B0403215A

PATIENT
  Age: 57 Year
  Sex: Female

DRUGS (9)
  1. NIQUITIN CQ 21MG [Suspect]
     Dosage: 21MG PER DAY
     Route: 062
     Dates: start: 20051124
  2. INSULIN [Concomitant]
  3. FLUOXETINE [Concomitant]
  4. METFORMIN [Concomitant]
  5. HRT [Concomitant]
  6. ATORVASTATIN [Concomitant]
  7. OMACOR [Concomitant]
  8. IRBESARTAN [Concomitant]
  9. FUROSEMIDE [Concomitant]

REACTIONS (1)
  - HYPOGLYCAEMIA [None]
